FAERS Safety Report 8832542 (Version 3)
Quarter: 2012Q4

REPORT INFORMATION
  Report Type: 
  Country: IN (occurrence: IN)
  Receive Date: 20121010
  Receipt Date: 20121101
  Transmission Date: 20130627
  Serious: Yes (Other)
  Sender: FDA-Public Use
  Company Number: IN-RANBAXY-2012RR-60923

PATIENT
  Age: 80 Year
  Sex: Female

DRUGS (4)
  1. AMLODIPINE [Suspect]
     Indication: HYPERTENSION
     Dosage: 10 mg, qd
     Route: 048
  2. HYDROCHLOROTHIAZIDE [Suspect]
     Indication: HYPERTENSION
     Dosage: 12.5 mg, qd
     Route: 048
  3. SENSORCAINE [Suspect]
     Indication: SPINAL ANAESTHESIA
     Dosage: 12.5 mg, administered through L3/4 interspace
     Route: 037
  4. MIDAZOLAM [Suspect]
     Indication: ANXIETY
     Dosage: 1 mg/ml, single dose
     Route: 042

REACTIONS (2)
  - Hypotension [Recovered/Resolved]
  - Tachycardia [Not Recovered/Not Resolved]
